FAERS Safety Report 10191143 (Version 1)
Quarter: 2014Q2

REPORT INFORMATION
  Report Type: Spontaneous
  Country: PL (occurrence: PL)
  Receive Date: 20140523
  Receipt Date: 20140523
  Transmission Date: 20141212
  Serious: Yes (Hospitalization)
  Sender: FDA-Public Use
  Company Number: PL-ROCHE-1405906

PATIENT
  Age: 15 Year
  Sex: Female
  Weight: 64 kg

DRUGS (15)
  1. XOLAIR [Suspect]
     Indication: ASTHMA
     Route: 058
     Dates: start: 20130625
  2. METYPRED [Concomitant]
  3. EUPHYLLINE [Concomitant]
  4. FOSTEX (POLAND) [Concomitant]
  5. VENTOLIN [Concomitant]
  6. PULMICORT [Concomitant]
  7. METYPRED [Concomitant]
  8. SINGULAR [Concomitant]
  9. LORATADINE [Concomitant]
  10. XYZAL [Concomitant]
  11. KALDYUM [Concomitant]
  12. MAGNE-B6 (POLAND) [Concomitant]
  13. POLPRAZOL [Concomitant]
  14. RANIGAST [Concomitant]
  15. NO-SPA [Concomitant]

REACTIONS (4)
  - Headache [Not Recovered/Not Resolved]
  - Ovarian enlargement [Unknown]
  - Migraine [Unknown]
  - Abdominal pain [Unknown]
